FAERS Safety Report 7565665-4 (Version None)
Quarter: 2011Q2

REPORT INFORMATION
  Report Type: 
  Country: None (occurrence: None)
  Receive Date: 20110616
  Receipt Date: 20110602
  Transmission Date: 20111010
  Serious: Yes (Death, Hospitalization)
  Sender: FDA-Public Use
  Company Number: IN-2011-1290

PATIENT
  Age: 52 Year
  Sex: Female

DRUGS (6)
  1. ONDANSETRON [Concomitant]
  2. RANITIDINE [Concomitant]
  3. NAVELBINE [Suspect]
     Indication: BREAST CANCER
     Dosage: 41 MG 1X/WK, IV
     Route: 042
     Dates: start: 20110506, end: 20110521
  4. BIBW 2992 [Suspect]
     Indication: BREAST CANCER
     Dosage: 40 MG QD, PO
     Route: 048
     Dates: start: 20110506, end: 20110531
  5. DEXAMETHASONE SODIUM PHOSPHATE [Concomitant]
  6. LOPERAMIDE [Suspect]
     Indication: DIARRHOEA
     Dosage: 2 MG, QD, IV
     Route: 042
     Dates: start: 20110524

REACTIONS (7)
  - MULTI-ORGAN FAILURE [None]
  - NEUTROPENIA [None]
  - DIARRHOEA [None]
  - SEPSIS [None]
  - RENAL FAILURE [None]
  - PYREXIA [None]
  - LOSS OF CONSCIOUSNESS [None]
